FAERS Safety Report 5192849-5 (Version None)
Quarter: 2006Q4

REPORT INFORMATION
  Report Type: 
  Country: None (occurrence: None)
  Receive Date: 20061228
  Receipt Date: 20051222
  Transmission Date: 20070319
  Serious: No
  Sender: FDA-Public Use
  Company Number: US-GLAXOSMITHKLINE-A0586813A

PATIENT
  Age: 46 Year
  Sex: Male

DRUGS (4)
  1. FLONASE [Suspect]
     Indication: DRUG USE FOR UNKNOWN INDICATION
     Dosage: 2SPR PER DAY
     Route: 045
     Dates: start: 19950101
  2. SUDAFED 12 HOUR [Concomitant]
  3. INSULIN [Concomitant]
  4. LIPITOR [Concomitant]

REACTIONS (2)
  - ILL-DEFINED DISORDER [None]
  - PHARMACEUTICAL PRODUCT COMPLAINT [None]
